FAERS Safety Report 9515519 (Version 1)
Quarter: 2013Q1

REPORT INFORMATION
  Report Type: Spontaneous
  Country: US (occurrence: None)
  Receive Date: 20130305
  Receipt Date: 20130305
  Transmission Date: 20140127
  Serious: Yes (Other)
  Sender: FDA-Public Use
  Company Number: 163-21880-12121537

PATIENT
  Age: 72 Year
  Sex: Female
  Weight: 79.38 kg

DRUGS (4)
  1. REVLIMID ( LENALIDOMIDE) ( 10 MILLIGRAM, CAPSULES) [Suspect]
     Indication: PLASMA CELL MYELOMA
     Dosage: 10 MG, 28 IN 28 D, PO
     Route: 048
     Dates: start: 20120815
  2. ADULT LOW DOSE ASPIRIN ( ACETYLSALICYLIC ACID) [Concomitant]
  3. POTASSIUM ( POTASSIUM) ( TABLETS) [Concomitant]
  4. VITAMIN D ( ERGOCALCIFEROL) [Concomitant]

REACTIONS (1)
  - Thrombosis [None]
